FAERS Safety Report 6832629-5 (Version None)
Quarter: 2010Q3

REPORT INFORMATION
  Report Type: 
  Country: None (occurrence: None)
  Receive Date: 20100712
  Receipt Date: 20070326
  Transmission Date: 20110219
  Serious: No
  Sender: FDA-Public Use
  Company Number: US-PFIZER INC-2007020247

PATIENT
  Sex: Male
  Weight: 90.72 kg

DRUGS (2)
  1. CHANTIX [Suspect]
     Indication: SMOKING CESSATION THERAPY
     Route: 048
     Dates: start: 20070201
  2. CELEXA [Concomitant]
     Indication: ANTIDEPRESSANT THERAPY

REACTIONS (3)
  - DRY MOUTH [None]
  - DRY THROAT [None]
  - POLYDIPSIA [None]
